FAERS Safety Report 24266999 (Version 12)
Quarter: 2025Q3

REPORT INFORMATION
  Report Type: Spontaneous
  Country: US (occurrence: None)
  Receive Date: 20240830
  Receipt Date: 20250725
  Transmission Date: 20251020
  Serious: Yes (Hospitalization, Other)
  Sender: ADAMAS PHARMA
  Company Number: US-ADAMAS Pharma-ADM202408-003079

PATIENT
  Age: 74 Year
  Sex: Male

DRUGS (36)
  1. GOCOVRI [Suspect]
     Active Substance: AMANTADINE
     Indication: Dyskinesia
     Route: 048
     Dates: start: 20240814
  2. GOCOVRI [Suspect]
     Active Substance: AMANTADINE
     Indication: Parkinson^s disease
     Dosage: 137MG TOTAL
     Route: 048
     Dates: start: 20240814
  3. GOCOVRI [Suspect]
     Active Substance: AMANTADINE
     Route: 048
     Dates: start: 2024
  4. GOCOVRI [Suspect]
     Active Substance: AMANTADINE
     Route: 048
     Dates: start: 20240925
  5. GOCOVRI [Suspect]
     Active Substance: AMANTADINE
     Dosage: TOOK ONE 137MG CAPSULE ALONG WITH ONE 68.5 MG CAPSULE (TOTAL DAILY DOSE 205.5 MG)
     Route: 048
  6. ALBUTEROL [Concomitant]
     Active Substance: ALBUTEROL
  7. AMANTADINE [Concomitant]
     Active Substance: AMANTADINE
  8. ASPIRIN [Concomitant]
     Active Substance: ASPIRIN
  9. ATORVASTATIN [Concomitant]
     Active Substance: ATORVASTATIN
  10. BUSPIRONE [Concomitant]
     Active Substance: BUSPIRONE HYDROCHLORIDE
  11. CARBIDOPA\LEVODOPA [Concomitant]
     Active Substance: CARBIDOPA\LEVODOPA
  12. CLONAZEPAM [Concomitant]
     Active Substance: CLONAZEPAM
  13. DONEPEZIL [Concomitant]
     Active Substance: DONEPEZIL
  14. ELIQUIS [Concomitant]
     Active Substance: APIXABAN
  15. FAMOTIDINE [Concomitant]
     Active Substance: FAMOTIDINE
  16. GLIPIZIDE [Concomitant]
     Active Substance: GLIPIZIDE
  17. LEVOTHYROXINE [Concomitant]
     Active Substance: LEVOTHYROXINE
  18. LOSARTAN POTASSIUM [Concomitant]
     Active Substance: LOSARTAN POTASSIUM
  19. OMEPRAZOLE [Concomitant]
     Active Substance: OMEPRAZOLE
  20. MONTELUKAST [Concomitant]
     Active Substance: MONTELUKAST
  21. RYTARY [Concomitant]
     Active Substance: CARBIDOPA\LEVODOPA
  22. RYTARY [Concomitant]
     Active Substance: CARBIDOPA\LEVODOPA
  23. SERTRALINE [Concomitant]
     Active Substance: SERTRALINE HYDROCHLORIDE
  24. SYMBICORT [Concomitant]
     Active Substance: BUDESONIDE\FORMOTEROL FUMARATE DIHYDRATE
  25. TAMSULOSIN [Concomitant]
     Active Substance: TAMSULOSIN
  26. DOXYCYCLINE HYCLATE [Concomitant]
     Active Substance: DOXYCYCLINE HYCLATE
  27. IRON [Concomitant]
     Active Substance: IRON
  28. PANTOPRAZOLE [Concomitant]
     Active Substance: PANTOPRAZOLE
  29. DOXYCYCLINE [Concomitant]
     Active Substance: DOXYCYCLINE
  30. TESSALON [Concomitant]
     Active Substance: BENZONATATE
  31. AZELASTINE [Concomitant]
     Active Substance: AZELASTINE
  32. ONDANSETRON [Concomitant]
     Active Substance: ONDANSETRON
  33. LEXAPRO [Concomitant]
     Active Substance: ESCITALOPRAM OXALATE
  34. QUETIAPINE [Concomitant]
     Active Substance: QUETIAPINE
  35. ROPINIROLE [Concomitant]
     Active Substance: ROPINIROLE
  36. FUROSEMIDE [Concomitant]
     Active Substance: FUROSEMIDE

REACTIONS (29)
  - Pulmonary oedema [Not Recovered/Not Resolved]
  - Cardiac valve disease [Not Recovered/Not Resolved]
  - COVID-19 pneumonia [Not Recovered/Not Resolved]
  - Condition aggravated [Not Recovered/Not Resolved]
  - Loss of personal independence in daily activities [Not Recovered/Not Resolved]
  - Amnesia [Unknown]
  - Hallucination [Recovering/Resolving]
  - Orthostatic hypotension [Not Recovered/Not Resolved]
  - Fall [Not Recovered/Not Resolved]
  - Asthma [Not Recovered/Not Resolved]
  - Balance disorder [Not Recovered/Not Resolved]
  - Grip strength decreased [Not Recovered/Not Resolved]
  - Tremor [Not Recovered/Not Resolved]
  - Sinusitis [Not Recovered/Not Resolved]
  - Urinary incontinence [Not Recovered/Not Resolved]
  - Bruxism [Not Recovered/Not Resolved]
  - Dyskinesia [Not Recovered/Not Resolved]
  - Lip swelling [Not Recovered/Not Resolved]
  - Drooling [Unknown]
  - Asthenia [Unknown]
  - Norovirus infection [Unknown]
  - Oral herpes [Recovered/Resolved]
  - Dizziness postural [Not Recovered/Not Resolved]
  - Fall [Not Recovered/Not Resolved]
  - Orthostatic hypotension [Not Recovered/Not Resolved]
  - Drug ineffective [Unknown]
  - Drug effect less than expected [Unknown]
  - Product dose omission issue [Unknown]
  - Inappropriate schedule of product administration [Unknown]

NARRATIVE: CASE EVENT DATE: 20240816
